FAERS Safety Report 21503466 (Version 2)
Quarter: 2022Q4

REPORT INFORMATION
  Report Type: Spontaneous
  Country: US (occurrence: US)
  Receive Date: 20221025
  Receipt Date: 20221102
  Transmission Date: 20230113
  Serious: Yes (Other)
  Sender: FDA-Public Use
  Company Number: US-GSKCCFUS-Case-01536748_AE-87078

PATIENT

DRUGS (1)
  1. INCRUSE ELLIPTA [Suspect]
     Active Substance: UMECLIDINIUM BROMIDE
     Indication: Product used for unknown indication
     Dosage: UNK

REACTIONS (8)
  - Choking [Unknown]
  - Cough [Unknown]
  - Drug hypersensitivity [Unknown]
  - Product after taste [Unknown]
  - Asthma [Unknown]
  - Drug ineffective [Unknown]
  - Underdose [Unknown]
  - Product complaint [Unknown]
